FAERS Safety Report 19631759 (Version 2)
Quarter: 2021Q3

REPORT INFORMATION
  Report Type: Spontaneous
  Country: US (occurrence: US)
  Receive Date: 20210728
  Receipt Date: 20210915
  Transmission Date: 20211014
  Serious: Yes (Other)
  Sender: FDA-Public Use
  Company Number: US-PURDUE-USA-2021-0276963

PATIENT
  Age: 86 Year
  Sex: Male
  Weight: 97.5 kg

DRUGS (1)
  1. COLACE [Suspect]
     Active Substance: DOCUSATE SODIUM
     Indication: CONSTIPATION
     Dosage: 100 MG, UNK
     Route: 048

REACTIONS (2)
  - Cough [Unknown]
  - Foreign body aspiration [Unknown]

NARRATIVE: CASE EVENT DATE: 20210711
